FAERS Safety Report 21938333 (Version 2)
Quarter: 2023Q1

REPORT INFORMATION
  Report Type: Spontaneous
  Country: US (occurrence: US)
  Receive Date: 20230201
  Receipt Date: 20230302
  Transmission Date: 20230417
  Serious: Yes (Hospitalization)
  Sender: FDA-Public Use
  Company Number: US-JNJFOC-20230161103

PATIENT
  Age: 53 Year
  Sex: Female

DRUGS (1)
  1. EVITHROM [Suspect]
     Active Substance: THROMBIN HUMAN
     Indication: Post procedural haemorrhage
     Route: 061

REACTIONS (1)
  - Abdominal adhesions [Unknown]

NARRATIVE: CASE EVENT DATE: 20221201
